FAERS Safety Report 23187342 (Version 1)
Quarter: 2023Q4

REPORT INFORMATION
  Report Type: Spontaneous
  Country: US (occurrence: None)
  Receive Date: 20231115
  Receipt Date: 20231115
  Transmission Date: 20240110
  Serious: Yes (Other)
  Sender: FDA-Public Use
  Company Number: None

PATIENT
  Age: 66 Year
  Sex: Female

DRUGS (1)
  1. DIMETHYL FUMARATE [Suspect]
     Active Substance: DIMETHYL FUMARATE
     Dosage: FREQUENCY : TWICE A DAY;?

REACTIONS (22)
  - Vaginal infection [None]
  - Blood magnesium decreased [None]
  - Abdominal pain upper [None]
  - Multiple sclerosis [None]
  - Balance disorder [None]
  - Haemorrhoids [None]
  - Faeces discoloured [None]
  - Gait disturbance [None]
  - Bladder disorder [None]
  - Gastrointestinal disorder [None]
  - Memory impairment [None]
  - Depression [None]
  - Dizziness [None]
  - Feeling of body temperature change [None]
  - Headache [None]
  - Libido decreased [None]
  - Tremor [None]
  - Fatigue [None]
  - Hypoaesthesia [None]
  - Paraesthesia [None]
  - Muscle spasms [None]
  - Asthenia [None]
